FAERS Safety Report 5131367-7 (Version None)
Quarter: 2006Q4

REPORT INFORMATION
  Report Type: 
  Country: None (occurrence: None)
  Receive Date: 20061016
  Receipt Date: 20061004
  Transmission Date: 20070319
  Serious: Yes (Other)
  Sender: FDA-Public Use
  Company Number: 230745

PATIENT
  Age: 15 Year
  Sex: Male
  Weight: 51.7 kg

DRUGS (1)
  1. NUTROPIN AQ [Suspect]
     Indication: BODY HEIGHT BELOW NORMAL
     Dosage: 3.5 MG 7/WEEK, SUBCUTANEOUS
     Route: 058
     Dates: start: 20050118, end: 20060912

REACTIONS (2)
  - CARDIOVASCULAR DISORDER [None]
  - VENTRICULAR HYPERTROPHY [None]
